FAERS Safety Report 9002055 (Version 1)
Quarter: 2013Q1

REPORT INFORMATION
  Report Type: Spontaneous
  Country: JP (occurrence: JP)
  Receive Date: 20130107
  Receipt Date: 20130107
  Transmission Date: 20140127
  Serious: Yes (Hospitalization)
  Sender: FDA-Public Use
  Company Number: JP-ASTRAZENECA-2012SE96388

PATIENT
  Age: 77 Year
  Sex: Male
  Weight: 77.3 kg

DRUGS (10)
  1. CRESTOR [Suspect]
     Route: 048
     Dates: start: 20110623, end: 20121127
  2. ALDACTONE-A [Concomitant]
  3. EXFORGE COMBINATION [Concomitant]
  4. LASIX [Concomitant]
  5. WARFARIN [Concomitant]
  6. ARTIST [Concomitant]
  7. ALOSENN [Concomitant]
  8. MAGMITT [Concomitant]
  9. MUCODYNE [Concomitant]
  10. PURSENNID [Concomitant]

REACTIONS (2)
  - Rhabdomyolysis [Recovered/Resolved]
  - Arrhythmia [Unknown]
